FAERS Safety Report 24074373 (Version 1)
Quarter: 2024Q3

REPORT INFORMATION
  Report Type: Spontaneous
  Country: US (occurrence: US)
  Receive Date: 20240710
  Receipt Date: 20240710
  Transmission Date: 20241017
  Serious: No
  Sender: TEVA
  Company Number: US-TEVA-VS-3217362

PATIENT
  Age: 55 Year
  Sex: Male

DRUGS (2)
  1. CYCLOSPORINE MODIFIED [Suspect]
     Active Substance: CYCLOSPORINE
     Indication: Dermatitis contact
     Route: 065
  2. CYCLOSPORINE MODIFIED [Suspect]
     Active Substance: CYCLOSPORINE
     Indication: Dermatitis contact
     Dosage: DOSAGE: 100 MG/ML
     Route: 065

REACTIONS (3)
  - Exposure to allergen [Unknown]
  - Product use in unapproved indication [Unknown]
  - Product administration error [Unknown]
